FAERS Safety Report 5141268-6 (Version None)
Quarter: 2006Q4

REPORT INFORMATION
  Report Type: 
  Country: None (occurrence: None)
  Receive Date: 20061101
  Receipt Date: 20060224
  Transmission Date: 20070319
  Serious: Yes (Death, Other)
  Sender: FDA-Public Use
  Company Number: PHBS2006GB03112

PATIENT
  Age: 73 Year
  Sex: Male

DRUGS (2)
  1. CYCLOSPORINE [Suspect]
     Indication: RENAL TRANSPLANT
     Route: 065
  2. PREDNISOLONE [Suspect]
     Indication: RENAL TRANSPLANT
     Route: 065

REACTIONS (6)
  - BASAL CELL CARCINOMA [None]
  - BOWEN'S DISEASE [None]
  - MELANOCYTIC NAEVUS [None]
  - MYOCARDIAL INFARCTION [None]
  - SQUAMOUS CELL CARCINOMA [None]
  - SUPERFICIAL SPREADING MELANOMA STAGE UNSPECIFIED [None]
